FAERS Safety Report 7438614-7 (Version None)
Quarter: 2011Q2

REPORT INFORMATION
  Report Type: 
  Country: None (occurrence: None)
  Receive Date: 20110426
  Receipt Date: 20110421
  Transmission Date: 20111010
  Serious: Yes (Other)
  Sender: FDA-Public Use
  Company Number: CA-PFIZER INC-2011072110

PATIENT
  Age: 65 Year
  Sex: Female
  Weight: 68.027 kg

DRUGS (9)
  1. PREDNISONE [Concomitant]
     Indication: FIBROMYALGIA
     Dosage: 5 MG, 1X/DAY
     Dates: start: 20110319, end: 20110415
  2. CALCIUM WITH VITAMIN D [Concomitant]
     Indication: PROPHYLAXIS
     Dosage: 500/400, 2X/DAY
     Dates: start: 20101217
  3. LYRICA [Suspect]
     Dosage: 25 MG EVERY MORNING AND 50 MG AT BEDTIME
     Dates: start: 20110208, end: 20110310
  4. LYRICA [Suspect]
     Dosage: 100 MG, DAILY
     Dates: start: 20110311, end: 20110324
  5. LYRICA [Suspect]
     Indication: FIBROMYALGIA
     Dosage: 25 MG, 2X/DAY
     Dates: start: 20110201, end: 20110207
  6. FOSAMAX [Concomitant]
     Indication: OSTEOPENIA
     Dosage: 70 MG, WEEKLY
     Dates: end: 20110101
  7. PREDNISONE [Concomitant]
     Indication: MYALGIA
     Dosage: 7.5 MG, 1X/DAY
     Dates: start: 20101209, end: 20110318
  8. PANTOLOC ^NYCOMED^ [Concomitant]
     Indication: PROPHYLAXIS AGAINST GASTROINTESTINAL ULCER
     Dosage: UNK
     Dates: start: 20101209, end: 20110415
  9. LYRICA [Suspect]
     Dosage: 50 MG EVERY MORNING AND 75 MG EVERY EVENING
     Dates: start: 20110325, end: 20110415

REACTIONS (4)
  - DIZZINESS [None]
  - DRUG INEFFECTIVE [None]
  - PARAESTHESIA ORAL [None]
  - ANOSMIA [None]
